FAERS Safety Report 4786932-3 (Version None)
Quarter: 2005Q3

REPORT INFORMATION
  Report Type: 
  Country: None (occurrence: None)
  Receive Date: 20050930
  Receipt Date: 20050921
  Transmission Date: 20060218
  Serious: Yes (Other)
  Sender: FDA-Public Use
  Company Number: 2005132534

PATIENT
  Age: 43 Year
  Sex: Male

DRUGS (5)
  1. LIPITOR [Suspect]
     Indication: ILL-DEFINED DISORDER
     Dosage: 10 MG (10 MG, 1 IN 1 D), UNKNOWN
     Route: 065
  2. NOVOLIN N [Concomitant]
  3. GLUCOPHAGE [Concomitant]
  4. MONOPRIL [Concomitant]
  5. ASPIRIN [Concomitant]

REACTIONS (1)
  - LEUKOCYTOCLASTIC VASCULITIS [None]
